FAERS Safety Report 9505655 (Version 1)
Quarter: 2013Q1

REPORT INFORMATION
  Report Type: Spontaneous
  Country: US (occurrence: None)
  Receive Date: 20130220
  Receipt Date: 20130220
  Transmission Date: 20140127
  Serious: No
  Sender: FDA-Public Use
  Company Number: 1000039860

PATIENT
  Age: 55 Year
  Sex: Female

DRUGS (6)
  1. VIIBRYD [Suspect]
     Indication: DEPRESSION
     Route: 048
     Dates: start: 2012, end: 2012
  2. VIIBRYD [Suspect]
     Indication: DEPRESSION
     Route: 048
     Dates: start: 2012, end: 2012
  3. INSULIN (INSULIN) (INSULIN) [Concomitant]
  4. ACTOS (PIOGLITAZONE HYDROCHLORIDE) (PIOGLITAZONE HYDROCHLORIDE) [Concomitant]
  5. VITAMIN D (VITAMIN D) (VITAMIN D) [Concomitant]
  6. AMITIZA (LUBIPROSTONE) (LUBIPROSTONE) [Concomitant]

REACTIONS (5)
  - Pruritus [None]
  - Hallucination [None]
  - Abnormal dreams [None]
  - Headache [None]
  - Dizziness [None]
